FAERS Safety Report 22245439 (Version 1)
Quarter: 2023Q2

REPORT INFORMATION
  Report Type: Spontaneous
  Country: CN (occurrence: CN)
  Receive Date: 20230424
  Receipt Date: 20230424
  Transmission Date: 20230721
  Serious: Yes (Hospitalization)
  Sender: FDA-Public Use
  Company Number: CN-MYLANLABS-2023M1041591

PATIENT
  Age: 74 Year
  Sex: Female
  Weight: 57.5 kg

DRUGS (2)
  1. CELEBREX [Suspect]
     Active Substance: CELECOXIB
     Indication: Antiinflammatory therapy
     Dosage: 0.2 GRAM, QD
     Route: 048
     Dates: start: 20230411, end: 20230411
  2. CELEBREX [Suspect]
     Active Substance: CELECOXIB
     Indication: Analgesic therapy

REACTIONS (4)
  - Nausea [Recovered/Resolved]
  - Vomiting [Recovered/Resolved]
  - Chest discomfort [Recovered/Resolved]
  - Blood pressure decreased [Recovered/Resolved]

NARRATIVE: CASE EVENT DATE: 20230411
